FAERS Safety Report 7913137-7 (Version None)
Quarter: 2011Q4

REPORT INFORMATION
  Report Type: 
  Country: None (occurrence: None)
  Receive Date: 20111114
  Receipt Date: 20111031
  Transmission Date: 20120403
  Serious: Yes (Hospitalization)
  Sender: FDA-Public Use
  Company Number: US-ELI_LILLY_AND_COMPANY-US201103001410

PATIENT
  Sex: Female

DRUGS (1)
  1. FORTEO [Suspect]
     Indication: CALCIUM METABOLISM DISORDER
     Dosage: 20 UG, DAILY (1/D)
     Dates: start: 20100302

REACTIONS (4)
  - INFECTION [None]
  - OFF LABEL USE [None]
  - FALL [None]
  - INJECTION SITE HAEMATOMA [None]
